FAERS Safety Report 24628229 (Version 2)
Quarter: 2025Q1

REPORT INFORMATION
  Report Type: Report from Study
  Country: FR (occurrence: FR)
  Receive Date: 20241117
  Receipt Date: 20250111
  Transmission Date: 20250409
  Serious: Yes (Hospitalization, Other)
  Sender: AUROBINDO
  Company Number: FR-EMA-DD-20241104-7482691-112014

PATIENT
  Age: 84 Year
  Sex: Male

DRUGS (5)
  1. DIGOXIN [Interacting]
     Active Substance: DIGOXIN
     Indication: Atrial fibrillation
     Dosage: 125 MICROGRAM, ONCE A DAY (QD)
     Route: 065
  2. ENZALUTAMIDE [Interacting]
     Active Substance: ENZALUTAMIDE
     Indication: Prostate cancer
     Dosage: 160 MILLIGRAM, ONCE A DAY (QD)
     Route: 065
  3. ENZALUTAMIDE [Interacting]
     Active Substance: ENZALUTAMIDE
     Indication: Hormone-refractory prostate cancer
     Route: 065
  4. UNSPECIFIED INGREDIENT [Concomitant]
     Active Substance: UNSPECIFIED INGREDIENT
     Indication: Atrial fibrillation
     Route: 065
  5. COUMADIN [Concomitant]
     Active Substance: WARFARIN SODIUM
     Indication: Atrial fibrillation
     Route: 065

REACTIONS (7)
  - Cardioactive drug level increased [Unknown]
  - General physical health deterioration [Unknown]
  - Renal failure [Unknown]
  - Atrial fibrillation [Unknown]
  - Hyperkalaemia [Unknown]
  - Drug interaction [Unknown]
  - Heart rate abnormal [Unknown]
